FAERS Safety Report 6056970-1 (Version None)
Quarter: 2009Q1

REPORT INFORMATION
  Report Type: 
  Country: None (occurrence: None)
  Receive Date: 20090126
  Receipt Date: 20090126
  Transmission Date: 20090719
  Serious: No
  Sender: FDA-Public Use
  Company Number: None

PATIENT
  Sex: Female
  Weight: 98.64 kg

DRUGS (6)
  1. MAXZIDE [Suspect]
     Dosage: 75-50MG TABLET QD ORAL
     Route: 048
     Dates: start: 20080725, end: 20090126
  2. AMLODIPINE [Concomitant]
  3. HYDRALAZINE HCL [Concomitant]
  4. KCL SLOW RELEASE [Concomitant]
  5. LIPITOR [Concomitant]
  6. OMEPRAZOLE [Concomitant]

REACTIONS (1)
  - HYPOKALAEMIA [None]
